FAERS Safety Report 7472643-2 (Version None)
Quarter: 2011Q2

REPORT INFORMATION
  Report Type: 
  Country: None (occurrence: None)
  Receive Date: 20110502
  Receipt Date: 20110420
  Transmission Date: 20111010
  Serious: Yes (Other)
  Sender: FDA-Public Use
  Company Number: US-JNJFOC-20110405674

PATIENT
  Age: 65 Year
  Sex: Female

DRUGS (1)
  1. DACOGEN [Suspect]
     Indication: CHRONIC MYELOID LEUKAEMIA
     Dosage: 650 MG, 1 IN 5 DAY, INTRAVENOUS
     Route: 042
     Dates: start: 20091201

REACTIONS (2)
  - LOSS OF CONSCIOUSNESS [None]
  - DEAFNESS NEUROSENSORY [None]
